FAERS Safety Report 8960869 (Version 2)
Quarter: 2012Q4

REPORT INFORMATION
  Report Type: 
  Country: AT (occurrence: AT)
  Receive Date: 20121212
  Receipt Date: 20121226
  Transmission Date: 20130627
  Serious: Yes (Hospitalization, Disabling)
  Sender: FDA-Public Use
  Company Number: AT-TEVA-373162ISR

PATIENT
  Age: 74 Year
  Sex: Female
  Weight: 82 kg

DRUGS (2)
  1. SIVASTATIN RATIOPHARM 80 MG [Suspect]
     Indication: BLOOD CHOLESTEROL INCREASED
     Route: 048
     Dates: start: 20121105
  2. METFORMIN/GLITAZONE [Concomitant]

REACTIONS (10)
  - Rhabdomyolysis [Unknown]
  - Activities of daily living impaired [Unknown]
  - Muscular weakness [Recovering/Resolving]
  - Dizziness [Unknown]
  - Nausea [Unknown]
  - Dyspnoea [Unknown]
  - Myalgia [Unknown]
  - Cardiovascular disorder [Unknown]
  - Cold sweat [Unknown]
  - Myositis [Unknown]
